FAERS Safety Report 22318307 (Version 2)
Quarter: 2023Q2

REPORT INFORMATION
  Report Type: Report from Study
  Country: CA (occurrence: CA)
  Receive Date: 20230515
  Receipt Date: 20230530
  Transmission Date: 20230721
  Serious: Yes (Death)
  Sender: FDA-Public Use
  Company Number: CA-ABBVIE-4765992

PATIENT
  Sex: Male
  Weight: 57 kg

DRUGS (2)
  1. VENCLEXTA [Suspect]
     Active Substance: VENETOCLAX
     Indication: Acute lymphocytic leukaemia
     Dosage: STOP DATE - 2023
     Route: 048
     Dates: start: 20230320, end: 20230416
  2. AZACITIDINE [Concomitant]
     Active Substance: AZACITIDINE
     Indication: T-cell type acute leukaemia
     Route: 058
     Dates: start: 20230320, end: 20230326

REACTIONS (2)
  - T-cell type acute leukaemia [Fatal]
  - Off label use [Unknown]

NARRATIVE: CASE EVENT DATE: 20230101
